FAERS Safety Report 10235448 (Version 2)
Quarter: 2014Q2

REPORT INFORMATION
  Report Type: Report from Study
  Country: US (occurrence: US)
  Receive Date: 20140613
  Receipt Date: 20140619
  Transmission Date: 20141212
  Serious: Yes (Other)
  Sender: FDA-Public Use
  Company Number: US-BAYER-2014-085028

PATIENT
  Age: 52 Year
  Sex: Male
  Weight: 90.7 kg

DRUGS (8)
  1. LEVITRA [Suspect]
     Indication: ERECTILE DYSFUNCTION
     Dosage: 20 MG, UNK
     Route: 048
     Dates: start: 20140502, end: 20140516
  2. LEVITRA [Suspect]
     Indication: DIABETES MELLITUS
  3. LEVITRA [Suspect]
     Indication: HYPERTENSION
  4. GLUCOPHAGE [Concomitant]
     Indication: DIABETES MELLITUS
     Dosage: 500 MG, BID
     Route: 048
  5. LOTENSIN [Concomitant]
     Indication: HYPERTENSION
     Dosage: 80 MG, QD
     Route: 048
  6. NORVASC [Concomitant]
     Indication: HYPERTENSION
     Dosage: 10 MG, QD
     Route: 048
  7. ULTRAM [Concomitant]
     Indication: HERPES ZOSTER
     Dosage: 200 MG, QD
     Route: 048
     Dates: start: 20140213
  8. LYRICA [Concomitant]
     Indication: HERPES ZOSTER
     Dosage: 600 MG, QD
     Route: 048
     Dates: start: 20140213

REACTIONS (1)
  - Optic ischaemic neuropathy [Not Recovered/Not Resolved]
